FAERS Safety Report 18767117 (Version 1)
Quarter: 2021Q1

REPORT INFORMATION
  Report Type: Spontaneous
  Country: CN (occurrence: CN)
  Receive Date: 20210121
  Receipt Date: 20210121
  Transmission Date: 20210419
  Serious: Yes (Hospitalization, Other)
  Sender: FDA-Public Use
  Company Number: CN-LUPIN PHARMACEUTICALS INC.-2021-00402

PATIENT
  Age: 63 Year
  Sex: Male

DRUGS (17)
  1. OLANZAPINE. [Suspect]
     Active Substance: OLANZAPINE
     Indication: PSYCHIATRIC SYMPTOM
     Dosage: 5 MILLIGRAM, QD (ONCE A DAY)
     Route: 065
  2. CYCLOPHOSPHAMIDE. [Suspect]
     Active Substance: CYCLOPHOSPHAMIDE
     Indication: ENCEPHALITIS AUTOIMMUNE
     Dosage: 0.4 GRAM (ONCE PER WEEK)
     Route: 065
  3. DOPAMINE [Concomitant]
     Active Substance: DOPAMINE HYDROCHLORIDE
     Indication: HYPOTENSION
     Dosage: UNK
     Route: 065
  4. METHYLPREDNISOLONE. [Suspect]
     Active Substance: METHYLPREDNISOLONE
     Dosage: 500 MILLIGRAM (ONCE PER THREE DAYS)
     Route: 042
  5. HALOPERIDOL. [Suspect]
     Active Substance: HALOPERIDOL
     Indication: PSYCHIATRIC SYMPTOM
     Dosage: 5 MILLIGRAM
     Route: 030
  6. ARAMINE [Concomitant]
     Active Substance: METARAMINOL BITARTRATE
     Indication: HYPOTENSION
     Dosage: UNK
     Route: 065
  7. ACYCLOVIR [ACICLOVIR] [Concomitant]
     Active Substance: ACYCLOVIR
     Indication: ANTIVIRAL TREATMENT
     Dosage: 0.5 GRAM, TID
     Route: 065
  8. METHYLPREDNISOLONE. [Suspect]
     Active Substance: METHYLPREDNISOLONE
     Indication: IMMUNOSUPPRESSANT DRUG THERAPY
     Dosage: 1000 MILLIGRAM
     Route: 042
  9. SEROTONIN [Concomitant]
     Active Substance: SEROTONIN
     Indication: HYPOTENSION
     Dosage: UNK
     Route: 065
  10. LEVETIRACETAM. [Concomitant]
     Active Substance: LEVETIRACETAM
     Indication: SEIZURE
     Dosage: UNK (UP TO 500MG, TWICE PER DAY)
     Route: 065
  11. IMMUNOGLOBULIN [IMMUNOGLOBULIN HUMAN NORMAL] [Concomitant]
     Active Substance: HUMAN IMMUNOGLOBULIN G
     Indication: ENCEPHALITIS AUTOIMMUNE
     Dosage: 2 G/KG; TWO COURSES GIVEN
     Route: 042
  12. METHYLPREDNISOLONE. [Suspect]
     Active Substance: METHYLPREDNISOLONE
     Dosage: 500 MILLIGRAM, QD
     Route: 042
  13. VALPROATE [Concomitant]
     Active Substance: VALPROIC ACID
     Indication: SEIZURE
     Dosage: 0.5 GRAM, BID
     Route: 065
  14. MIDODRINE HYDROCHLORIDE. [Concomitant]
     Active Substance: MIDODRINE HYDROCHLORIDE
     Indication: HYPOTENSION
     Dosage: 5 MILLIGRAM
     Route: 065
  15. QUETIAPINE FUMARATE. [Suspect]
     Active Substance: QUETIAPINE FUMARATE
     Indication: PSYCHIATRIC SYMPTOM
     Dosage: 0.2 GRAM (PER NIGHT)
     Route: 065
  16. METHYLPREDNISOLONE. [Suspect]
     Active Substance: METHYLPREDNISOLONE
     Indication: ENCEPHALITIS AUTOIMMUNE
     Dosage: 60 MILLIGRAM, QD
     Route: 065
  17. CYCLOPHOSPHAMIDE. [Suspect]
     Active Substance: CYCLOPHOSPHAMIDE
     Indication: IMMUNOSUPPRESSANT DRUG THERAPY
     Dosage: 0.4 GRAM (TWICE PER WEEK)
     Route: 065

REACTIONS (3)
  - Klebsiella infection [Recovering/Resolving]
  - Therapy non-responder [Unknown]
  - Infection [Recovering/Resolving]
